FAERS Safety Report 14579903 (Version 3)
Quarter: 2019Q4

REPORT INFORMATION
  Report Type: Report from Study
  Country: US (occurrence: US)
  Receive Date: 20180228
  Receipt Date: 20191004
  Transmission Date: 20200122
  Serious: Yes (Hospitalization)
  Sender: FDA-Public Use
  Company Number: US-ROCHE-2076022

PATIENT
  Age: 80 Year
  Sex: Male
  Weight: 88 kg

DRUGS (15)
  1. APIXABAN [Concomitant]
     Active Substance: APIXABAN
     Route: 048
     Dates: start: 20160306
  2. OXYCODONE [Concomitant]
     Active Substance: OXYCODONE
     Route: 048
     Dates: start: 20180215, end: 20180530
  3. CHOLECALCIFEROL [Concomitant]
     Active Substance: CHOLECALCIFEROL
     Route: 048
     Dates: start: 20160513
  4. BISOPROLOL [Concomitant]
     Active Substance: BISOPROLOL
     Route: 048
     Dates: start: 20160306
  5. ATEZOLIZUMAB. [Suspect]
     Active Substance: ATEZOLIZUMAB
     Indication: HORMONE-REFRACTORY PROSTATE CANCER
     Dosage: MOST RECENT DOSE OF ATEZOLIZUMAB PRIOR TO AE ONSET 2 FEB 2018 AT 12 23?DOSE AS PER PROTOCOL: ATEZOLI
     Route: 042
     Dates: start: 20180202
  6. FUROSEMIDE. [Concomitant]
     Active Substance: FUROSEMIDE
     Route: 048
     Dates: start: 20180215, end: 20180530
  7. PREDNISOLONE. [Concomitant]
     Active Substance: PREDNISOLONE
     Route: 047
     Dates: start: 20180202
  8. ENZALUTAMIDE [Suspect]
     Active Substance: ENZALUTAMIDE
     Indication: HORMONE-REFRACTORY PROSTATE CANCER
     Dosage: DATE OF MOST RECENT DOSE OF SUSPECTED ENZALUTAMIDE PRIOR TO AE ONSET ON 8 FEB 2018 AT 11 15 AND ON 1
     Route: 048
     Dates: start: 20180202
  9. FLECAINIDE [Concomitant]
     Active Substance: FLECAINIDE
     Route: 048
     Dates: start: 20160513
  10. PROCHLORPERAZINE. [Concomitant]
     Active Substance: PROCHLORPERAZINE
     Route: 048
     Dates: start: 20180209
  11. PRILOSEC [Concomitant]
     Active Substance: OMEPRAZOLE MAGNESIUM
     Route: 048
  12. PREDNISONE. [Concomitant]
     Active Substance: PREDNISONE
     Route: 048
     Dates: start: 20180223
  13. ALLOPURINOL. [Concomitant]
     Active Substance: ALLOPURINOL
     Route: 048
     Dates: start: 20160306
  14. TAMSULOSIN [Concomitant]
     Active Substance: TAMSULOSIN
     Route: 048
  15. LACTATED RINGERS SOLUTION [Concomitant]
     Active Substance: CALCIUM CHLORIDE\POTASSIUM CHLORIDE\SODIUM CHLORIDE\SODIUM LACTATE
     Route: 042
     Dates: start: 20180215, end: 20180215

REACTIONS (1)
  - Encephalopathy [Recovering/Resolving]

NARRATIVE: CASE EVENT DATE: 20180209
